FAERS Safety Report 25492702 (Version 2)
Quarter: 2025Q3

REPORT INFORMATION
  Report Type: Spontaneous
  Country: GB (occurrence: GB)
  Receive Date: 20250630
  Receipt Date: 20250715
  Transmission Date: 20251020
  Serious: Yes (Hospitalization, Other)
  Sender: IPCA
  Company Number: GB-IPCA LABORATORIES LIMITED-IPC-2025-GB-001685

PATIENT

DRUGS (1)
  1. HYDROXYCHLOROQUINE [Suspect]
     Active Substance: HYDROXYCHLOROQUINE
     Indication: Systemic lupus erythematosus
     Route: 065

REACTIONS (13)
  - Erythema multiforme [Recovering/Resolving]
  - Posterior reversible encephalopathy syndrome [Recovered/Resolved]
  - Hypokalaemia [Recovered/Resolved]
  - Hypertension [Recovered/Resolved]
  - Cerebral haemorrhage [Recovered/Resolved]
  - Delirium [Recovered/Resolved]
  - Hyponatraemia [Recovered/Resolved]
  - Rash erythematous [Recovering/Resolving]
  - Confusional state [Recovered/Resolved]
  - Rash [Recovering/Resolving]
  - Gaze palsy [Recovered/Resolved]
  - Blindness cortical [Recovered/Resolved]
  - Thrombocytopenia [Recovered/Resolved]
